FAERS Safety Report 4509974-1 (Version None)
Quarter: 2004Q4

REPORT INFORMATION
  Report Type: 
  Country: None (occurrence: None)
  Receive Date: 20041124
  Receipt Date: 20041012
  Transmission Date: 20050328
  Serious: Yes (Hospitalization)
  Sender: FDA-Public Use
  Company Number: FR-ABBOTT-04P-056-0277654-00

PATIENT
  Age: 51 Year
  Sex: Male

DRUGS (9)
  1. ISOPTIN LP [Suspect]
     Indication: DRUG USE FOR UNKNOWN INDICATION
     Route: 048
     Dates: end: 20040402
  2. EUPANTOL [Suspect]
     Indication: GOUTY ARTHRITIS
     Route: 048
     Dates: end: 20040402
  3. DICLOFENAC SODIUM [Suspect]
     Indication: DRUG USE FOR UNKNOWN INDICATION
     Route: 048
     Dates: end: 20040402
  4. CLAVULIN [Suspect]
     Indication: BRONCHITIS
     Route: 048
     Dates: start: 20040312, end: 20040320
  5. CIPROFLOXACIN [Suspect]
     Indication: BRONCHITIS
     Route: 048
     Dates: start: 20040312, end: 20040320
  6. COLCHICINE [Concomitant]
     Indication: ARTHRITIS
     Route: 048
     Dates: start: 20040312, end: 20040312
  7. COLCHICINE [Concomitant]
     Route: 048
     Dates: start: 20040415
  8. NICARDIPINE HCL [Concomitant]
     Indication: DRUG USE FOR UNKNOWN INDICATION
     Route: 048
  9. NICARDIPINE HCL [Concomitant]
     Route: 048
     Dates: start: 20040506

REACTIONS (9)
  - BLOOD BILIRUBIN INCREASED [None]
  - BLOOD CREATININE INCREASED [None]
  - CHROMATURIA [None]
  - FAECES DISCOLOURED [None]
  - GOUTY ARTHRITIS [None]
  - HEPATITIS [None]
  - MYOGLOBIN BLOOD INCREASED [None]
  - OCULAR ICTERUS [None]
  - RHABDOMYOLYSIS [None]
